FAERS Safety Report 21591929 (Version 1)
Quarter: 2022Q4

REPORT INFORMATION
  Report Type: Spontaneous
  Country: IE (occurrence: None)
  Receive Date: 20221112
  Receipt Date: 20221112
  Transmission Date: 20230112
  Serious: Yes (Life-Threatening, Hospitalization, Disabling)
  Sender: FDA-Public Use
  Company Number: None

PATIENT
  Age: 41 Year
  Sex: Female
  Weight: 56.25 kg

DRUGS (2)
  1. MAXOLON [Suspect]
     Active Substance: METOCLOPRAMIDE HYDROCHLORIDE
     Indication: Nausea
  2. HYDROCORTISONE [Concomitant]
     Active Substance: HYDROCORTISONE

REACTIONS (10)
  - Suicidal ideation [None]
  - Anxiety [None]
  - Muscle spasms [None]
  - Agitation [None]
  - Nervousness [None]
  - Feeling abnormal [None]
  - Feeling jittery [None]
  - Reduced facial expression [None]
  - Muscle rigidity [None]
  - Post-traumatic stress disorder [None]

NARRATIVE: CASE EVENT DATE: 20220510
